FAERS Safety Report 6249113-2 (Version None)
Quarter: 2009Q2

REPORT INFORMATION
  Report Type: 
  Country: None (occurrence: None)
  Receive Date: 20090624
  Receipt Date: 20090624
  Transmission Date: 20091009
  Serious: No
  Sender: FDA-Public Use
  Company Number: None

PATIENT
  Age: 59 Year
  Sex: Female
  Weight: 72.5755 kg

DRUGS (1)
  1. FLUTICASONE PROPIONATE [Suspect]
     Indication: TYMPANIC MEMBRANE HYPERAEMIA
     Dosage: 2 SPRAYS ONCE DAY NASAL
     Route: 045
     Dates: start: 20090617, end: 20090622

REACTIONS (4)
  - ASTHENIA [None]
  - HEADACHE [None]
  - OROPHARYNGEAL PAIN [None]
  - PYREXIA [None]
